FAERS Safety Report 18465294 (Version 1)
Quarter: 2020Q4

REPORT INFORMATION
  Report Type: Spontaneous
  Country: FR (occurrence: FR)
  Receive Date: 20201104
  Receipt Date: 20201104
  Transmission Date: 20210114
  Serious: Yes (Hospitalization, Other)
  Sender: FDA-Public Use
  Company Number: FR-LUNDBECK-DKLU3023472

PATIENT
  Sex: Male
  Weight: 2.7 kg

DRUGS (3)
  1. URBANYL [Suspect]
     Active Substance: CLOBAZAM
     Indication: EPILEPSY
     Route: 064
     Dates: start: 20200615, end: 20200807
  2. DEPAKINE [Concomitant]
     Active Substance: VALPROATE SODIUM
     Indication: PRODUCT USED FOR UNKNOWN INDICATION
     Route: 065
  3. KEPPRA [Suspect]
     Active Substance: LEVETIRACETAM
     Indication: EPILEPSY
     Route: 064
     Dates: end: 20200807

REACTIONS (4)
  - Withdrawal syndrome [Unknown]
  - Dyskinesia [Recovered/Resolved]
  - Hypotonia neonatal [Recovered/Resolved]
  - Tremor [Recovered/Resolved]
